FAERS Safety Report 8835826 (Version 2)
Quarter: 2012Q4

REPORT INFORMATION
  Report Type: Report from Study
  Country: DK (occurrence: DK)
  Receive Date: 20121011
  Receipt Date: 20121226
  Transmission Date: 20130627
  Serious: Yes (Other)
  Sender: FDA-Public Use
  Company Number: DK-PFIZER INC-2012248338

PATIENT
  Age: 62 Year
  Sex: Male
  Weight: 86 kg

DRUGS (1)
  1. SALAZOPYRIN [Suspect]
     Indication: BECHTEREW^S DISEASE
     Dosage: 500 mg, UNK
     Route: 048
     Dates: start: 20010329

REACTIONS (1)
  - Prostate cancer [Recovered/Resolved]
